FAERS Safety Report 9214570 (Version 3)
Quarter: 2013Q2

REPORT INFORMATION
  Report Type: Spontaneous
  Country: US (occurrence: US)
  Receive Date: 20130405
  Receipt Date: 20130510
  Transmission Date: 20140414
  Serious: Yes (Other)
  Sender: FDA-Public Use
  Company Number: US-ROCHE-1209574

PATIENT
  Age: 64 Year
  Sex: Female
  Weight: 91.25 kg

DRUGS (15)
  1. XOLAIR [Suspect]
     Indication: ASTHMA
     Route: 030
     Dates: start: 20120927, end: 20130401
  2. ADVAIR DISKUS [Concomitant]
     Indication: ASTHMA
     Dosage: 1 PUFF
     Route: 055
  3. ALBUTEROL [Concomitant]
     Indication: ASTHMA
     Dosage: 1 AMP.
     Route: 055
  4. SINGULAIR [Concomitant]
     Indication: ASTHMA
     Route: 048
  5. NASONEX [Concomitant]
     Indication: RHINITIS ALLERGIC
     Dosage: 2 SPRAYS
     Route: 045
  6. PROVENTIL [Concomitant]
     Indication: ASTHMA
     Dosage: 2 PUFFS
     Route: 055
  7. LOSARTAN/HCTZ [Concomitant]
     Dosage: STRENGTH-100-25 MG
     Route: 048
  8. ASPIRIN [Concomitant]
     Route: 048
  9. METOPROLOL TARTRATE [Concomitant]
     Indication: HYPERTENSION
     Route: 048
  10. CLONIDINE HCL [Concomitant]
     Route: 048
  11. VYTORIN [Concomitant]
     Indication: HYPERTENSION
     Dosage: STRENGTH- 10-20 MG
     Route: 048
  12. FAMOTIDINE [Concomitant]
     Route: 048
  13. EPIPEN [Concomitant]
     Indication: HYPERSENSITIVITY
     Dosage: 2 PAK
     Route: 030
  14. LEVOTHYROXINE [Concomitant]
     Indication: THYROID DISORDER
     Route: 048
  15. GLIMEPIRIDE [Concomitant]
     Indication: DIABETES MELLITUS
     Dosage: HALF TABLET DAILY
     Route: 048

REACTIONS (5)
  - Dyspnoea [Unknown]
  - Rash [Recovered/Resolved]
  - Cough [Recovered/Resolved]
  - Wheezing [Recovered/Resolved]
  - Asthma [Unknown]
